FAERS Safety Report 9286651 (Version 1)
Quarter: 2013Q2

REPORT INFORMATION
  Report Type: Spontaneous
  Country: US (occurrence: US)
  Receive Date: 20130513
  Receipt Date: 20130513
  Transmission Date: 20140414
  Serious: No
  Sender: FDA-Public Use
  Company Number: US-ASTRAZENECA-2013SE26894

PATIENT
  Age: 26 Year
  Sex: Female
  Weight: 66.2 kg

DRUGS (3)
  1. NEXIUM [Suspect]
     Indication: GASTROOESOPHAGEAL REFLUX DISEASE
     Route: 048
     Dates: start: 201303
  2. PRILOSEC [Suspect]
     Indication: GASTROOESOPHAGEAL REFLUX DISEASE
     Route: 048
     Dates: start: 2010
  3. PREDNISONE [Concomitant]
     Indication: INFLAMMATION
     Dates: start: 2010

REACTIONS (3)
  - Trichiniasis [Unknown]
  - Inflammation [Unknown]
  - Drug ineffective [Unknown]
